FAERS Safety Report 10734035 (Version 1)
Quarter: 2015Q1

REPORT INFORMATION
  Report Type: Spontaneous
  Country: FR (occurrence: None)
  Receive Date: 20150120
  Receipt Date: 20150120
  Transmission Date: 20150721
  Serious: Yes (Hospitalization)
  Sender: FDA-Public Use
  Company Number: 20150047

PATIENT
  Age: 41 Year
  Sex: Male

DRUGS (2)
  1. METOJECT [Suspect]
     Active Substance: METHOTREXATE SODIUM
     Indication: ANKYLOSING SPONDYLITIS
     Route: 058
     Dates: start: 20141104, end: 20141119
  2. SIMPONI [Suspect]
     Active Substance: GOLIMUMAB
     Route: 058
     Dates: start: 20141102

REACTIONS (7)
  - Meningitis aseptic [None]
  - Propionibacterium test positive [None]
  - Fatigue [None]
  - Hepatocellular injury [None]
  - Encephalitis [None]
  - Dermatitis psoriasiform [None]
  - Transaminases increased [None]

NARRATIVE: CASE EVENT DATE: 20141111
